FAERS Safety Report 18696531 (Version 1)
Quarter: 2021Q1

REPORT INFORMATION
  Report Type: Spontaneous
  Country: GB (occurrence: GB)
  Receive Date: 20210104
  Receipt Date: 20210104
  Transmission Date: 20210419
  Serious: Yes (Other)
  Sender: FDA-Public Use
  Company Number: NVSC2020GB343846

PATIENT
  Age: 25 Year
  Sex: Male
  Weight: 53.8 kg

DRUGS (2)
  1. AZATHIOPRINE. [Concomitant]
     Active Substance: AZATHIOPRINE
     Indication: PRODUCT USED FOR UNKNOWN INDICATION
     Dosage: UNK
     Route: 065
  2. CIPROFLOXACIN HYDROCHLORIDE. [Suspect]
     Active Substance: CIPROFLOXACIN HYDROCHLORIDE
     Indication: PERICHONDRITIS
     Dosage: 1000 MG, QD
     Route: 048
     Dates: start: 20201207, end: 20201209

REACTIONS (5)
  - Presyncope [Recovered/Resolved]
  - Vision blurred [Recovered/Resolved]
  - Heart rate increased [Recovered/Resolved]
  - Dizziness [Recovering/Resolving]
  - Tremor [Recovered/Resolved with Sequelae]

NARRATIVE: CASE EVENT DATE: 20201209
